FAERS Safety Report 8809941 (Version 3)
Quarter: 2014Q4

REPORT INFORMATION
  Report Type: Spontaneous
  Country: US (occurrence: US)
  Receive Date: 20120926
  Receipt Date: 20141112
  Transmission Date: 20150529
  Serious: Yes (Hospitalization, Other)
  Sender: FDA-Public Use
  Company Number: US-009507513-1203USA01686

PATIENT
  Sex: Female
  Weight: 54.89 kg

DRUGS (7)
  1. FOSAMAX [Suspect]
     Active Substance: ALENDRONATE SODIUM
     Indication: OSTEOPOROSIS
     Dosage: 70 MG, UNK
     Route: 048
     Dates: start: 20011220, end: 20061008
  2. FOSAMAX [Suspect]
     Active Substance: ALENDRONATE SODIUM
     Indication: OSTEOPENIA
  3. FOSAMAX [Suspect]
     Active Substance: ALENDRONATE SODIUM
     Indication: OSTEOPOROSIS
     Dosage: 70 MG, UNK
     Route: 048
     Dates: start: 20080219, end: 201010
  4. FOSAMAX [Suspect]
     Active Substance: ALENDRONATE SODIUM
     Indication: OSTEOPENIA
  5. PROCARDIA XL [Concomitant]
     Active Substance: NIFEDIPINE
     Dosage: 30 MG, UNK
     Dates: start: 2000
  6. FOSAMAX PLUS D [Suspect]
     Active Substance: ALENDRONATE SODIUM\CHOLECALCIFEROL
     Dosage: 70 MG, UNK
     Route: 048
     Dates: start: 20061009, end: 20070620
  7. CELEXA [Concomitant]
     Active Substance: CITALOPRAM HYDROBROMIDE
     Indication: DEPRESSION
     Dosage: 20-40
     Dates: start: 2000

REACTIONS (21)
  - Low turnover osteopathy [Unknown]
  - Bone graft [Unknown]
  - Spinal osteoarthritis [Unknown]
  - Fall [Unknown]
  - Headache [Unknown]
  - Hyperlipidaemia [Unknown]
  - Joint injury [Unknown]
  - Fracture delayed union [Unknown]
  - Fracture nonunion [Unknown]
  - Fall [Unknown]
  - Tooth fracture [Unknown]
  - Scoliosis [Unknown]
  - Onychomycosis [Unknown]
  - Internal fixation of fracture [Unknown]
  - Hyperparathyroidism [Unknown]
  - Foot fracture [Recovered/Resolved]
  - Femur fracture [Unknown]
  - Adverse event [Unknown]
  - Hypertonic bladder [Unknown]
  - Blood cholesterol increased [Not Recovered/Not Resolved]
  - Bursitis [Unknown]

NARRATIVE: CASE EVENT DATE: 2004
